FAERS Safety Report 20237543 (Version 1)
Quarter: 2021Q4

REPORT INFORMATION
  Report Type: Spontaneous
  Country: US (occurrence: None)
  Receive Date: 20211227
  Receipt Date: 20211227
  Transmission Date: 20220303
  Serious: Yes (Hospitalization)
  Sender: FDA-Public Use
  Company Number: None

PATIENT
  Sex: Female

DRUGS (3)
  1. REBIF REBIDOSE [Suspect]
     Active Substance: INTERFERON BETA-1A
     Indication: Multiple sclerosis
     Dosage: OTHER QUANTITY : 44MCG/0.5ML;?FREQUENCY : 3 TIMES A WEEK;?
     Route: 058
     Dates: start: 20201110
  2. PREDNISONE [Concomitant]
     Active Substance: PREDNISONE
  3. XANAX [Concomitant]

REACTIONS (7)
  - Fatigue [None]
  - Eye pain [None]
  - Balance disorder [None]
  - Pain in extremity [None]
  - Limb discomfort [None]
  - Dry eye [None]
  - Thyroid disorder [None]
